FAERS Safety Report 6531155-0 (Version None)
Quarter: 2010Q1

REPORT INFORMATION
  Report Type: 
  Country: None (occurrence: None)
  Receive Date: 20100108
  Receipt Date: 20091231
  Transmission Date: 20100710
  Serious: Yes (Hospitalization, Other)
  Sender: FDA-Public Use
  Company Number: US-AMGEN-QUU358431

PATIENT
  Sex: Female
  Weight: 73.5 kg

DRUGS (7)
  1. ENBREL [Suspect]
     Indication: RHEUMATOID ARTHRITIS
     Route: 058
     Dates: start: 19990101
  2. PRILOSEC [Concomitant]
  3. COREG [Concomitant]
  4. LEVOXYL [Concomitant]
  5. COZAAR [Concomitant]
  6. HYDROCHLOROTHIAZIDE [Concomitant]
  7. METFORMIN HCL [Concomitant]

REACTIONS (9)
  - BRONCHITIS [None]
  - CATARACT OPERATION [None]
  - CEREBROVASCULAR ACCIDENT [None]
  - EYE DISORDER [None]
  - HERPES ZOSTER [None]
  - PNEUMONIA [None]
  - POST PROCEDURAL COMPLICATION [None]
  - SKIN EXFOLIATION [None]
  - VISION BLURRED [None]
